FAERS Safety Report 5049104-3 (Version None)
Quarter: 2006Q3

REPORT INFORMATION
  Report Type: 
  Country: None (occurrence: None)
  Receive Date: 20060706
  Receipt Date: 20060623
  Transmission Date: 20061208
  Serious: Yes (Hospitalization)
  Sender: FDA-Public Use
  Company Number: 2006079833

PATIENT
  Age: 75 Year
  Sex: Female
  Weight: 61 kg

DRUGS (8)
  1. SUTENT [Suspect]
     Indication: METASTATIC RENAL CELL CARCINOMA
     Dosage: 50 MG (50 MG, 1 IN 1 D), ORAL; SEE IMAGE
     Route: 048
     Dates: start: 20060413, end: 20060511
  2. SUTENT [Suspect]
     Indication: METASTATIC RENAL CELL CARCINOMA
     Dosage: 50 MG (50 MG, 1 IN 1 D), ORAL; SEE IMAGE
     Route: 048
     Dates: start: 20060524
  3. ALFACALCIDOL                    (ALFACALCIDOL) [Concomitant]
  4. LEVOTHYROXINE SODIUM [Concomitant]
  5. SIMVASTATIN [Concomitant]
  6. VERAPAMIL [Concomitant]
  7. NOVALGIN (METAMIZOLE SODIUM) [Concomitant]
  8. CARNIGEN FORTE                (OXILOFRINE HYDROCHLORIDE) [Concomitant]

REACTIONS (4)
  - ANAEMIA [None]
  - DISEASE PROGRESSION [None]
  - GENERAL PHYSICAL HEALTH DETERIORATION [None]
  - THROMBOCYTOPENIA [None]
